FAERS Safety Report 8129704-4 (Version None)
Quarter: 2012Q1

REPORT INFORMATION
  Report Type: 
  Country: None (occurrence: None)
  Receive Date: 20120210
  Receipt Date: 20120130
  Transmission Date: 20120608
  Serious: Yes (Other)
  Sender: FDA-Public Use
  Company Number: US-UCBSA-050724

PATIENT
  Sex: Female

DRUGS (5)
  1. INSULIN [Concomitant]
     Indication: DIABETES MELLITUS
     Dosage: 1.6 UNITS PER DAY
  2. ESTRADIOL [Concomitant]
     Indication: OESTROGEN DEFICIENCY
     Route: 048
  3. FOLIC ACID [Concomitant]
     Indication: PREGNANCY
     Route: 048
  4. KEPPRA [Suspect]
     Indication: EPILEPSY
     Dosage: DAILY DOSE: 3000 MG
  5. VITAMIN AND MINERAL PRENATAL SUPPLEMENT W/ FOLIC ACID CAP [Concomitant]
     Indication: PREGNANCY
     Dosage: 1 PILL QD
     Route: 048

REACTIONS (6)
  - DIABETES MELLITUS [None]
  - CARDIAC MURMUR [None]
  - HYPOVITAMINOSIS [None]
  - INTERVERTEBRAL DISC DEGENERATION [None]
  - PREGNANCY [None]
  - ABORTION SPONTANEOUS [None]
